FAERS Safety Report 5197521-3 (Version None)
Quarter: 2006Q4

REPORT INFORMATION
  Report Type: 
  Country: None (occurrence: None)
  Receive Date: 20060926
  Receipt Date: 20001030
  Transmission Date: 20070319
  Serious: Yes (Other)
  Sender: FDA-Public Use
  Company Number: PHEH2000US10022

PATIENT
  Sex: 0

DRUGS (1)
  1. VOLTAREN [Suspect]
     Dosage: ORAL
     Route: 048

REACTIONS (1)
  - GASTRITIS EROSIVE [None]
